FAERS Safety Report 22275747 (Version 2)
Quarter: 2023Q2

REPORT INFORMATION
  Report Type: Spontaneous
  Country: CA (occurrence: CA)
  Receive Date: 20230502
  Receipt Date: 20230616
  Transmission Date: 20230722
  Serious: Yes (Hospitalization, Other)
  Sender: FDA-Public Use
  Company Number: E2B_06174379

PATIENT
  Sex: Male

DRUGS (7)
  1. PFIZER-BIONTECH COVID-19 VACCINE [Suspect]
     Active Substance: TOZINAMERAN
     Indication: COVID-19 immunisation
     Dosage: UNK
     Route: 065
  2. SOLIRIS [Suspect]
     Active Substance: ECULIZUMAB
     Indication: Atypical haemolytic uraemic syndrome
     Dosage: 600 MG, UNK
     Route: 042
  3. AMLODIPINE [Concomitant]
     Active Substance: AMLODIPINE BESYLATE
     Indication: Product used for unknown indication
     Dosage: UNK
     Route: 065
  4. ASACOL [Concomitant]
     Active Substance: MESALAMINE
     Indication: Product used for unknown indication
     Dosage: UNK
     Route: 065
  5. METOPROLOL [Concomitant]
     Active Substance: METOPROLOL
     Indication: Product used for unknown indication
     Dosage: UNK
     Route: 065
  6. RAMIPRIL [Concomitant]
     Active Substance: RAMIPRIL
     Indication: Product used for unknown indication
     Dosage: UNK
     Route: 065
  7. TINZAPARIN [Concomitant]
     Active Substance: TINZAPARIN
     Indication: Product used for unknown indication
     Dosage: UNK
     Route: 065

REACTIONS (13)
  - Chronic kidney disease [Unknown]
  - Diarrhoea haemorrhagic [Unknown]
  - Haemorrhoidal haemorrhage [Unknown]
  - Helicobacter infection [Unknown]
  - Laboratory test abnormal [Unknown]
  - Platelet count decreased [Unknown]
  - Pulmonary embolism [Unknown]
  - Superficial vein thrombosis [Unknown]
  - Abdominal pain [Unknown]
  - Chest pain [Unknown]
  - Renal impairment [Unknown]
  - Headache [Unknown]
  - Hypersensitivity [Unknown]
